FAERS Safety Report 25812448 (Version 4)
Quarter: 2025Q4

REPORT INFORMATION
  Report Type: Report from Study
  Country: JP (occurrence: JP)
  Receive Date: 20250917
  Receipt Date: 20251222
  Transmission Date: 20260118
  Serious: Yes (Hospitalization)
  Sender: RECORDATI
  Company Number: JP-ORPHANEU-2023003339

PATIENT
  Age: 0 Year
  Sex: Female
  Weight: 3.704 kg

DRUGS (11)
  1. CARBAGLU [Suspect]
     Active Substance: CARGLUMIC ACID
     Indication: Propionic acidaemia
     Dosage: 100 MILLIGRAM, BID (52.6 MG/KG/DAY)
     Dates: start: 20220704, end: 20230202
  2. CARBAGLU [Suspect]
     Active Substance: CARGLUMIC ACID
     Indication: Hyperammonaemia
     Dosage: 400 MG DAILY (BID)
     Dates: start: 20230203, end: 20230601
  3. CARBAGLU [Suspect]
     Active Substance: CARGLUMIC ACID
     Indication: Amino acid metabolism disorder
     Dosage: 800 MG DAILY (BID)
     Dates: start: 20230602
  4. CARBAGLU [Suspect]
     Active Substance: CARGLUMIC ACID
     Dosage: 1200 MG/DAY, VIA ORAL ROUTE/GASTROSTOMY
  5. LEVOCARNITINE [Concomitant]
     Active Substance: LEVOCARNITINE
     Indication: Propionic acidaemia
     Dosage: 4 MG DAILY (BID (INJECTION)), ORAL SOLUTION
     Dates: end: 20230202
  6. LEVOCARNITINE [Concomitant]
     Active Substance: LEVOCARNITINE
     Dosage: 6 MG DAILY (BID (INJECTION)),
     Dates: start: 20230203, end: 20230402
  7. LEVOCARNITINE [Concomitant]
     Active Substance: LEVOCARNITINE
     Dosage: 10 MG DAILY (BID (INJECTION))
     Dates: start: 20230403, end: 20230601
  8. LEVOCARNITINE [Concomitant]
     Active Substance: LEVOCARNITINE
     Dosage: 12 MG DAILY (BID (INJECTION))
     Dates: start: 20230602
  9. BIOTIN [Concomitant]
     Active Substance: BIOTIN
     Indication: Propionic acidaemia
     Dosage: 0.5 MG DAILY (BID (POWDER))
     Dates: end: 20230202
  10. BIOTIN [Concomitant]
     Active Substance: BIOTIN
     Dosage: 1 GRAM DAILY (BID (POWDER))
     Dates: start: 20230203
  11. MENATETRENONE [Concomitant]
     Active Substance: MENATETRENONE
     Indication: Vitamin supplementation
     Dosage: 2 MG DAILY (SYRUP)
     Dates: end: 20220727

REACTIONS (11)
  - Feeling abnormal [Unknown]
  - Hyperammonaemic crisis [Unknown]
  - Acute sinusitis [Recovered/Resolved]
  - Upper respiratory tract infection [Recovered/Resolved]
  - Platelet count decreased [Recovered/Resolved]
  - Feeding disorder [Unknown]
  - Anaemia [Recovering/Resolving]
  - Nausea [Recovered/Resolved]
  - Vomiting [Recovered/Resolved]
  - Overdose [Recovered/Resolved]
  - Off label use [Recovered/Resolved]

NARRATIVE: CASE EVENT DATE: 20220725
